FAERS Safety Report 4859272-1 (Version None)
Quarter: 2005Q4

REPORT INFORMATION
  Report Type: 
  Country: None (occurrence: None)
  Receive Date: 20051219
  Receipt Date: 20041109
  Transmission Date: 20060501
  Serious: No
  Sender: FDA-Public Use
  Company Number: US-GLAXOSMITHKLINE-A0533227A

PATIENT
  Age: 25 Year

DRUGS (3)
  1. NICODERM CQ [Suspect]
  2. NICODERM CQ [Suspect]
  3. NICORETTE OTC GUM, ORIGINAL [Suspect]

REACTIONS (4)
  - DYSGEUSIA [None]
  - FEELING JITTERY [None]
  - NAUSEA [None]
  - PAIN IN EXTREMITY [None]
